FAERS Safety Report 9867631 (Version 2)
Quarter: 2014Q2

REPORT INFORMATION
  Report Type: Report from Study
  Country: CA (occurrence: CA)
  Receive Date: 20140204
  Receipt Date: 20140401
  Transmission Date: 20141212
  Serious: Yes (Death, Hospitalization, Other)
  Sender: FDA-Public Use
  Company Number: CA-SANOFI-AVENTIS-200912373EU

PATIENT
  Age: 54 Year
  Sex: Female
  Weight: 73 kg

DRUGS (7)
  1. TERIFLUNOMIDE [Suspect]
     Indication: MULTIPLE SCLEROSIS RELAPSE
     Dosage: DOSE AS USED: 7 OR 14 MG? DOSE:1 UNIT(S)
     Route: 048
     Dates: start: 20070403, end: 20090616
  2. VITAMIN E [Concomitant]
     Indication: NUTRITIONAL SUPPLEMENTATION
     Dates: start: 1995
  3. VITAMINE C [Concomitant]
     Indication: NUTRITIONAL SUPPLEMENTATION
     Dates: start: 1995
  4. VITAMINE B12 [Concomitant]
     Indication: NUTRITIONAL SUPPLEMENTATION
     Dates: start: 1995
  5. ATACAND [Concomitant]
     Indication: HYPERTENSION
     Route: 048
     Dates: start: 20080508
  6. ADALAT [Concomitant]
     Indication: HYPERTENSION
     Route: 048
     Dates: start: 200805
  7. ZOPICLONE [Concomitant]

REACTIONS (3)
  - Colon cancer metastatic [Fatal]
  - Anastomotic leak [Recovered/Resolved]
  - Sepsis [Recovered/Resolved]
